FAERS Safety Report 7814844-7 (Version None)
Quarter: 2011Q4

REPORT INFORMATION
  Report Type: 
  Country: None (occurrence: None)
  Receive Date: 20111012
  Receipt Date: 20111005
  Transmission Date: 20120403
  Serious: Yes (Other)
  Sender: FDA-Public Use
  Company Number: JPI-P-015068

PATIENT
  Age: 65 Year
  Sex: Male
  Weight: 111.1313 kg

DRUGS (16)
  1. XYREM [Suspect]
  2. GABAPENTIN [Concomitant]
  3. LEVOTHYROXINE SODUM [Concomitant]
  4. ASPIRIN [Concomitant]
  5. PRAMIPEXOLE DIHYDROCHLORIDE [Concomitant]
  6. REGULAR INSULIN [Concomitant]
  7. FUROSEMIDE [Concomitant]
  8. TAPENTADOL [Concomitant]
  9. TORSEMIDE [Concomitant]
  10. POTASSIUM [Concomitant]
  11. MODAFINIL [Concomitant]
  12. CLONAZEPAM [Concomitant]
  13. XYREM [Suspect]
     Indication: RESTLESS LEGS SYNDROME
     Dosage: (3 GM NIGHTLY/REPEAT IF NEEDED), ORAL
     Route: 048
  14. NIACIN [Concomitant]
  15. XYREM [Suspect]
     Indication: INSOMNIA
     Dosage: ORAL
     Route: 048
     Dates: start: 20090301
  16. TESTOSTERONE PELLETS [Concomitant]

REACTIONS (4)
  - SCIATICA [None]
  - LUMBAR VERTEBRAL FRACTURE [None]
  - NEURALGIA [None]
  - INTERVERTEBRAL DISC PROTRUSION [None]
